FAERS Safety Report 11242286 (Version 1)
Quarter: 2015Q3

REPORT INFORMATION
  Report Type: Not Available
  Country: US (occurrence: US)
  Receive Date: 20150707
  Receipt Date: 20150707
  Transmission Date: 20151125
  Serious: No
  Sender: FDA-Public Use
  Company Number: US-LUPIN PHARMACEUTICALS INC.-E2B_00003419

PATIENT
  Age: 46 Year
  Sex: Female
  Weight: 81.72 kg

DRUGS (3)
  1. ESCITALOPRAM [Concomitant]
     Active Substance: ESCITALOPRAM OXALATE
     Indication: ANXIETY
  2. ZOLPIDEM TARTRATE EXTENDED-RELEASE [Suspect]
     Active Substance: ZOLPIDEM TARTRATE
     Dates: start: 2015
  3. ZOLPIDEM TARTRATE EXTENDED-RELEASE [Suspect]
     Active Substance: ZOLPIDEM TARTRATE
     Indication: INSOMNIA
     Dates: start: 20150325, end: 20150329

REACTIONS (3)
  - Sleep disorder [Not Recovered/Not Resolved]
  - Product substitution issue [Unknown]
  - Drug ineffective [Unknown]

NARRATIVE: CASE EVENT DATE: 20150325
